FAERS Safety Report 15703334 (Version 2)
Quarter: 2019Q1

REPORT INFORMATION
  Report Type: Spontaneous
  Country: JP (occurrence: JP)
  Receive Date: 20181210
  Receipt Date: 20190114
  Transmission Date: 20190417
  Serious: Yes (Death)
  Sender: FDA-Public Use
  Company Number: JP-ACTELION-A-CH2018-182861

PATIENT
  Age: 64 Year
  Sex: Female

DRUGS (2)
  1. MILRINONE LACTATE. [Concomitant]
     Active Substance: MILRINONE LACTATE
  2. BOSENTAN. [Suspect]
     Active Substance: BOSENTAN
     Indication: PULMONARY ARTERIAL HYPERTENSION
     Dosage: 2 DF, BID
     Route: 048
     Dates: start: 201802, end: 20180307

REACTIONS (2)
  - Idiopathic pulmonary fibrosis [Fatal]
  - Cardiac failure [Fatal]

NARRATIVE: CASE EVENT DATE: 20180307
